FAERS Safety Report 14778184 (Version 5)
Quarter: 2018Q3

REPORT INFORMATION
  Report Type: Spontaneous
  Country: DE (occurrence: DE)
  Receive Date: 20180419
  Receipt Date: 20180723
  Transmission Date: 20181010
  Serious: Yes (Hospitalization, Other)
  Sender: FDA-Public Use
  Company Number: DE-BAUSCH-BL-2018-010159

PATIENT
  Sex: Male

DRUGS (28)
  1. DOXORUBICIN [Suspect]
     Active Substance: DOXORUBICIN
     Dosage: LAST DOSE PRIOR TO SAE: 18/JUN/2015 (1 IN 1 D)
     Route: 042
     Dates: start: 20150618, end: 20150618
  2. AMLODIPINE [Concomitant]
     Active Substance: AMLODIPINE BESYLATE
     Indication: AORTIC VALVE INCOMPETENCE
     Route: 048
  3. METAMIZOL NATRIUM [Concomitant]
     Indication: PAIN
  4. SULFAMETHOXAZOLE, TRIMETHOPRIM [Concomitant]
     Active Substance: SULFAMETHOXAZOLE\TRIMETHOPRIM
     Dosage: 2 TIMES/WK
     Route: 048
     Dates: start: 201505
  5. PEGFILGRASTIM [Suspect]
     Active Substance: PEGFILGRASTIM
     Indication: B-CELL LYMPHOMA
     Dosage: QD
     Route: 058
     Dates: start: 20150712, end: 20150712
  6. RITUXIMAB. [Suspect]
     Active Substance: RITUXIMAB
     Dosage: LAST DOSE PRIOR TO SAE? 15/SEP/2015 (1 IN 1 D)
     Route: 042
     Dates: start: 20150915, end: 20150915
  7. METAMIZOL NATRIUM [Concomitant]
     Indication: PYREXIA
     Dosage: 1 G, AS NECESSARY, FOR 2 DAYS
     Route: 042
     Dates: start: 20150623, end: 20150624
  8. TAMSULOSIN [Concomitant]
     Active Substance: TAMSULOSIN
     Indication: BENIGN PROSTATIC HYPERPLASIA
     Dosage: QD
     Route: 048
  9. CALCIUM FOLINATE [Suspect]
     Active Substance: LEUCOVORIN CALCIUM
     Indication: B-CELL LYMPHOMA
     Dosage: 5 MG, QD (FOR 2 WEEKS)
     Route: 048
     Dates: start: 201505, end: 201505
  10. RITUXIMAB. [Suspect]
     Active Substance: RITUXIMAB
     Dosage: MOST RECENT CYCLE: 3; MOST RECENT DOSE PRIOR TO SAE: 17/JUN/2015 (L IN 1 D)
     Route: 042
     Dates: start: 20150617, end: 20150617
  11. COLECALCIFEROL [Concomitant]
     Active Substance: CHOLECALCIFEROL
     Dosage: 1 WEEKS
     Route: 048
     Dates: start: 201505
  12. DOXORUBICIN [Suspect]
     Active Substance: DOXORUBICIN
     Indication: B-CELL LYMPHOMA
     Dosage: LAST DOSE PRIOR TO SAE: 10/JUL/2015, LAST DOSE PRIOR TO SAET 13/JUL/2015 (1 IN 1 D)
     Route: 042
     Dates: start: 20150710, end: 20150710
  13. PEGFILGRASTIM [Suspect]
     Active Substance: PEGFILGRASTIM
     Dosage: QD
     Route: 058
     Dates: start: 20150711, end: 20150711
  14. PEGFILGRASTIM [Suspect]
     Active Substance: PEGFILGRASTIM
     Route: 058
     Dates: start: 20150621, end: 20150621
  15. RITUXIMAB. [Suspect]
     Active Substance: RITUXIMAB
     Indication: B-CELL LYMPHOMA
     Dosage: MOST RECENT CYCLE NUMBER 4; MOST RECENT DOSE PRIOR TO SAE: 09/JUL/2015
     Route: 042
     Dates: start: 20150709, end: 20150709
  16. FOLIC ACID. [Concomitant]
     Active Substance: FOLIC ACID
     Indication: PROPHYLAXIS
     Dosage: Q2WK
     Route: 048
     Dates: start: 201505
  17. PREDNISOLONE. [Suspect]
     Active Substance: PREDNISOLONE
     Indication: B-CELL LYMPHOMA
     Dosage: FOR 6 DAYS MOST RECENT DOSE PRIOR TO SAE: 18/JUN/2015 (1 IN 1 D)
     Route: 048
     Dates: start: 20150617, end: 20150622
  18. CALCIUM FOLINATE [Suspect]
     Active Substance: LEUCOVORIN CALCIUM
     Dosage: 5 MG, QD (FOR 2 WEEKS)
     Route: 048
     Dates: start: 20150620, end: 20150620
  19. VINCRISTINE [Suspect]
     Active Substance: VINCRISTINE
     Dosage: LAST DOSE PRIOR TO SAE: 10/JUL/2015, LAST DOSE PRIOR TO SAE: 13/JUL/2015 (1 IN 1D)
     Route: 042
     Dates: start: 20150710, end: 20150710
  20. CYCLOPHOSPHAMIDE. [Suspect]
     Active Substance: CYCLOPHOSPHAMIDE
     Indication: B-CELL LYMPHOMA
     Dosage: LAST DOSE PRIOR TO SAE: 10/JUL/2015, LAST DOSE PRIOR TO SAE: 13/JUL/2015 (1 IN 1 D)
     Route: 042
     Dates: start: 20150710
  21. CYCLOPHOSPHAMIDE. [Suspect]
     Active Substance: CYCLOPHOSPHAMIDE
     Dosage: QD (1)
     Route: 042
     Dates: start: 20150618, end: 20150618
  22. BISACODYL. [Concomitant]
     Active Substance: BISACODYL
     Indication: CONSTIPATION
     Route: 048
     Dates: start: 20150701, end: 20150702
  23. COLECALCIFEROL [Concomitant]
     Active Substance: CHOLECALCIFEROL
     Indication: VITAMIN D DEFICIENCY
     Dosage: 1 WEEKS
     Route: 048
     Dates: start: 201505
  24. POLYETHYLENE GLYCOL [Concomitant]
     Active Substance: POLYETHYLENE GLYCOLS
     Indication: CONSTIPATION
     Dosage: 1 BAG 1?0?0 FOR 3 DAYS
     Route: 048
     Dates: start: 20150701, end: 20150703
  25. SULFAMETHOXAZOLE, TRIMETHOPRIM [Concomitant]
     Active Substance: SULFAMETHOXAZOLE\TRIMETHOPRIM
     Indication: PROPHYLAXIS
     Dosage: 2 TIMES/WK, TOTAL DOSE:1920
     Route: 048
     Dates: start: 201505
  26. RAMIPRIL. [Concomitant]
     Active Substance: RAMIPRIL
     Indication: HYPERTENSION
     Dosage: 5 MG BID, TOATAL DOSE 10 MG
     Route: 048
  27. PREDNISOLONE. [Suspect]
     Active Substance: PREDNISOLONE
     Dosage: MOST RECENT DOSE PRIOR TO SAE: 10/JUL/2015, LAST DOSE PRIOR TO SAE: 13/JUL/2015
     Route: 048
     Dates: start: 20150709, end: 20150713
  28. VINCRISTINE [Suspect]
     Active Substance: VINCRISTINE
     Indication: B-CELL LYMPHOMA
     Dosage: LAST DOSE PRIOR TO SAE: 18/JUN/2015 (1 IN 1 D)
     Route: 042
     Dates: start: 20150618, end: 20150618

REACTIONS (2)
  - Urinary tract infection [Unknown]
  - Sepsis [Recovered/Resolved]

NARRATIVE: CASE EVENT DATE: 20150623
